FAERS Safety Report 13424705 (Version 3)
Quarter: 2017Q2

REPORT INFORMATION
  Report Type: Spontaneous
  Country: FR (occurrence: FR)
  Receive Date: 20170410
  Receipt Date: 20170420
  Transmission Date: 20170830
  Serious: Yes (Death)
  Sender: FDA-Public Use
  Company Number: FR-SA-2017SA062371

PATIENT
  Age: 65 Year
  Sex: Male

DRUGS (4)
  1. OPDIVO [Suspect]
     Active Substance: NIVOLUMAB
     Indication: SQUAMOUS CELL CARCINOMA OF LUNG
     Dosage: 0.2143 MG/KG (3 MG/KG, 1 IN 2 WEEKS(S))
     Route: 042
     Dates: start: 20161230, end: 20161230
  2. ITRACONAZOLE. [Interacting]
     Active Substance: ITRACONAZOLE
     Indication: BRONCHOPULMONARY ASPERGILLOSIS
     Route: 048
     Dates: start: 201609, end: 201702
  3. OPDIVO [Suspect]
     Active Substance: NIVOLUMAB
     Indication: SQUAMOUS CELL CARCINOMA OF LUNG
     Dosage: 0.2143 MG/KG (3 MG/KG, 1 IN 2 WEEKS(S))
     Route: 042
     Dates: start: 20160923, end: 20160923
  4. TAXOTERE [Suspect]
     Active Substance: DOCETAXEL
     Indication: SQUAMOUS CELL CARCINOMA OF LUNG
     Dosage: 140 MG, 1 SINGLE INTAKE
     Route: 042
     Dates: start: 20170126, end: 20170126

REACTIONS (4)
  - Enterocolitis [Fatal]
  - Febrile neutropenia [Fatal]
  - Gastrointestinal candidiasis [Fatal]
  - Drug interaction [Unknown]

NARRATIVE: CASE EVENT DATE: 20170202
